FAERS Safety Report 4801710-4 (Version None)
Quarter: 2005Q4

REPORT INFORMATION
  Report Type: 
  Country: None (occurrence: None)
  Receive Date: 20051018
  Receipt Date: 20051011
  Transmission Date: 20060501
  Serious: Yes (Death, Hospitalization)
  Sender: FDA-Public Use
  Company Number: US-AMGEN-US153860

PATIENT
  Sex: Female

DRUGS (4)
  1. ARANESP [Suspect]
     Indication: MYELODYSPLASTIC SYNDROME
     Dates: start: 20050311, end: 20050323
  2. LISINOPRIL [Concomitant]
  3. LEXAPRO [Concomitant]
  4. DIURETICS [Concomitant]

REACTIONS (2)
  - LOSS OF CONSCIOUSNESS [None]
  - MYELODYSPLASTIC SYNDROME [None]
